FAERS Safety Report 10548390 (Version 2)
Quarter: 2015Q1

REPORT INFORMATION
  Report Type: Spontaneous
  Country: US (occurrence: None)
  Receive Date: 20141024
  Receipt Date: 20150204
  Transmission Date: 20150720
  Serious: Yes (Other)
  Sender: FDA-Public Use
  Company Number: KAD201410-001301

PATIENT
  Sex: Male

DRUGS (3)
  1. RIBAVIRIN. [Suspect]
     Active Substance: RIBAVIRIN
     Indication: HEPATITIS C
     Dosage: INJECTION, 5 DAYS A WEEK INJECTION THEN 2 DAYS OFF
     Dates: start: 2011, end: 2012
  2. INFERGEN [Suspect]
     Active Substance: INTERFERON ALFACON-1
     Indication: HEPATITIS C
     Dates: end: 2012
  3. RAPAMUNE [Concomitant]
     Active Substance: SIROLIMUS

REACTIONS (5)
  - Renal transplant [None]
  - Irritability [None]
  - Hepatitis chronic active [None]
  - Injection site infection [None]
  - Liver transplant [None]
